FAERS Safety Report 9721243 (Version 1)
Quarter: 2013Q4

REPORT INFORMATION
  Report Type: Spontaneous
  Country: US (occurrence: US)
  Receive Date: 20131129
  Receipt Date: 20131129
  Transmission Date: 20140711
  Serious: No
  Sender: FDA-Public Use
  Company Number: US-PFIZER INC-2013338412

PATIENT
  Age: 44 Year
  Sex: Female
  Weight: 72.56 kg

DRUGS (2)
  1. SERTRALINE HCL [Suspect]
     Indication: DEPRESSION
     Dosage: 25 MG, 1X/DAY
     Route: 048
  2. SERTRALINE HCL [Suspect]
     Dosage: 25 MG, 1X/DAY
     Route: 048
     Dates: end: 20131114

REACTIONS (3)
  - Panic attack [Unknown]
  - Paraesthesia [Unknown]
  - Drug ineffective [Unknown]
